FAERS Safety Report 25273575 (Version 1)
Quarter: 2025Q2

REPORT INFORMATION
  Report Type: Report from Study
  Country: US (occurrence: US)
  Receive Date: 20250506
  Receipt Date: 20250506
  Transmission Date: 20250717
  Serious: Yes (Hospitalization, Other)
  Sender: MYLAN
  Company Number: US-MYLANLABS-2025M1035153

PATIENT
  Age: 64 Year
  Sex: Female
  Weight: 45 kg

DRUGS (1)
  1. PREGABALIN [Suspect]
     Active Substance: PREGABALIN
     Indication: Post herpetic neuralgia
     Dosage: 25 MILLIGRAM, BID (2 TIMES A DAY)
     Dates: start: 202404, end: 202405

REACTIONS (2)
  - Generalised tonic-clonic seizure [Recovered/Resolved]
  - Off label use [Unknown]

NARRATIVE: CASE EVENT DATE: 20240520
